FAERS Safety Report 20931010 (Version 1)
Quarter: 2022Q2

REPORT INFORMATION
  Report Type: Spontaneous
  Country: JP (occurrence: JP)
  Receive Date: 20220608
  Receipt Date: 20220608
  Transmission Date: 20220721
  Serious: Yes (Other)
  Sender: FDA-Public Use
  Company Number: JP-MYLANLABS-2022M1042616

PATIENT
  Age: 6 Year
  Sex: Male

DRUGS (10)
  1. IMATINIB [Suspect]
     Active Substance: IMATINIB
     Indication: B precursor type acute leukaemia
     Dosage: 270 MILLIGRAM/SQ. METER, QD
  2. IMATINIB [Suspect]
     Active Substance: IMATINIB
     Dosage: 135 MILLIGRAM/SQ. METER, QD
  3. IMATINIB [Suspect]
     Active Substance: IMATINIB
     Dosage: 340 MILLIGRAM/SQ. METER, QD
  4. PREDNISOLONE [Concomitant]
     Active Substance: PREDNISOLONE
     Indication: B precursor type acute leukaemia
  5. VINCRISTINE [Concomitant]
     Active Substance: VINCRISTINE
     Indication: B precursor type acute leukaemia
  6. DAUNORUBICIN [Concomitant]
     Active Substance: DAUNORUBICIN
     Indication: B precursor type acute leukaemia
  7. ASPARAGINASE [Concomitant]
     Active Substance: ASPARAGINASE
     Indication: B precursor type acute leukaemia
  8. CYCLOPHOSPHAMIDE [Concomitant]
     Active Substance: CYCLOPHOSPHAMIDE
     Indication: B precursor type acute leukaemia
  9. CYTARABINE [Concomitant]
     Active Substance: CYTARABINE
     Indication: B precursor type acute leukaemia
  10. MERCAPTOPURINE [Concomitant]
     Active Substance: MERCAPTOPURINE
     Indication: B precursor type acute leukaemia

REACTIONS (1)
  - Bone marrow necrosis [Recovered/Resolved]
